FAERS Safety Report 9380954 (Version 1)
Quarter: 2013Q3

REPORT INFORMATION
  Report Type: Spontaneous
  Country: US (occurrence: US)
  Receive Date: 20130703
  Receipt Date: 20130703
  Transmission Date: 20140515
  Serious: Yes (Other)
  Sender: FDA-Public Use
  Company Number: US-ROCHE-1241987

PATIENT
  Sex: Female
  Weight: 59.02 kg

DRUGS (2)
  1. ACCUTANE [Suspect]
     Indication: ACNE
     Route: 048
     Dates: start: 200204, end: 200207
  2. INSULIN [Concomitant]

REACTIONS (4)
  - Colitis ulcerative [Unknown]
  - Inflammatory bowel disease [Unknown]
  - Depression [Unknown]
  - Small intestinal obstruction [Unknown]
